FAERS Safety Report 9551826 (Version 2)
Quarter: 2013Q3

REPORT INFORMATION
  Report Type: Spontaneous
  Country: US (occurrence: US)
  Receive Date: 20130925
  Receipt Date: 20130925
  Transmission Date: 20140515
  Serious: No
  Sender: FDA-Public Use
  Company Number: US-MYLANLABS-2013S1012072

PATIENT
  Age: 68 Year
  Sex: Female
  Weight: 65.77 kg

DRUGS (5)
  1. ATORVASTATIN CALCIUM TABLETS [Suspect]
     Indication: BLOOD CHOLESTEROL INCREASED
     Route: 048
     Dates: start: 201212
  2. WELCHOL [Concomitant]
  3. FISH OIL [Concomitant]
  4. LEVOTHYROXINE [Concomitant]
  5. AMLODIPINE [Concomitant]

REACTIONS (5)
  - Drug effect decreased [Not Recovered/Not Resolved]
  - Blood cholesterol esterase increased [Not Recovered/Not Resolved]
  - Blood triglycerides increased [Not Recovered/Not Resolved]
  - High density lipoprotein decreased [Not Recovered/Not Resolved]
  - Low density lipoprotein abnormal [Not Recovered/Not Resolved]
